FAERS Safety Report 5050832-4 (Version None)
Quarter: 2006Q3

REPORT INFORMATION
  Report Type: 
  Country: None (occurrence: None)
  Receive Date: 20060710
  Receipt Date: 20060627
  Transmission Date: 20061208
  Serious: Yes (Hospitalization)
  Sender: FDA-Public Use
  Company Number: 2006080930

PATIENT
  Age: 35 Year
  Sex: Female

DRUGS (1)
  1. SUTENT [Suspect]
     Indication: RENAL CELL CARCINOMA STAGE UNSPECIFIED
     Dosage: 50 MG (50 MG, DAILY - INTERVAL: EVERY DAY), ORAL
     Route: 048
     Dates: start: 20060519

REACTIONS (8)
  - ANOREXIA [None]
  - DEHYDRATION [None]
  - DRUG TOXICITY [None]
  - DYSPNOEA [None]
  - FACE OEDEMA [None]
  - FATIGUE [None]
  - HYPOXIA [None]
  - PLEURAL EFFUSION [None]
